FAERS Safety Report 6181451-4 (Version None)
Quarter: 2009Q2

REPORT INFORMATION
  Report Type: 
  Country: None (occurrence: None)
  Receive Date: 20090505
  Receipt Date: 20090505
  Transmission Date: 20091009
  Serious: Yes (Other)
  Sender: FDA-Public Use
  Company Number: None

PATIENT
  Age: 65 Year
  Sex: Male
  Weight: 81.1 kg

DRUGS (1)
  1. CIPROFLOXACIN [Suspect]
     Indication: POUCHITIS
     Dosage: 500 MG BID PO
     Route: 048
     Dates: start: 20090309, end: 20090323

REACTIONS (1)
  - TENDON RUPTURE [None]
